FAERS Safety Report 5809480-8 (Version None)
Quarter: 2008Q3

REPORT INFORMATION
  Report Type: 
  Country: None (occurrence: None)
  Receive Date: 20080715
  Receipt Date: 20080708
  Transmission Date: 20090109
  Serious: Yes (Hospitalization)
  Sender: FDA-Public Use
  Company Number: JP-BRISTOL-MYERS SQUIBB COMPANY-14191324

PATIENT
  Age: 64 Year
  Sex: Male

DRUGS (5)
  1. MEVALOTIN [Suspect]
     Indication: HYPERLIPIDAEMIA
     Route: 048
     Dates: start: 20080220, end: 20080422
  2. RHEUMATREX [Suspect]
     Indication: RHEUMATOID ARTHRITIS
     Route: 048
     Dates: start: 20040727, end: 20080422
  3. SELBEX [Concomitant]
     Indication: RHEUMATOID ARTHRITIS
     Dosage: RESTARTED-07MAY08; 50MG 3 IN 1 DAY.
     Route: 048
     Dates: start: 20040727, end: 20080422
  4. FOLIAMIN [Concomitant]
     Indication: RHEUMATOID ARTHRITIS
     Route: 048
     Dates: start: 20040903, end: 20080422
  5. GASTER [Concomitant]
     Indication: RHEUMATOID ARTHRITIS
     Dosage: INTERRUPTED ON 2005,RESTARTED ON 07-MAY-2008.
     Route: 048
     Dates: start: 20070810, end: 20080422

REACTIONS (3)
  - C-REACTIVE PROTEIN INCREASED [None]
  - HEADACHE [None]
  - LIVER DISORDER [None]
